FAERS Safety Report 10019701 (Version 1)
Quarter: 2014Q1

REPORT INFORMATION
  Report Type: Spontaneous
  Country: US (occurrence: US)
  Receive Date: 20140318
  Receipt Date: 20140318
  Transmission Date: 20141002
  Serious: No
  Sender: FDA-Public Use
  Company Number: US-GALDERMA-US14000676

PATIENT
  Age: 51 Year
  Sex: Female

DRUGS (1)
  1. MIRVASO (BRIMONIDINE) TOPICAL GEL, 0.33% [Suspect]
     Indication: ROSACEA
     Dosage: 0.33%
     Route: 061
     Dates: start: 201402

REACTIONS (3)
  - Rash macular [Not Recovered/Not Resolved]
  - Condition aggravated [Not Recovered/Not Resolved]
  - Off label use [Not Recovered/Not Resolved]
